FAERS Safety Report 7275430-3 (Version None)
Quarter: 2011Q1

REPORT INFORMATION
  Report Type: 
  Country: None (occurrence: None)
  Receive Date: 20110204
  Receipt Date: 20110131
  Transmission Date: 20110831
  Serious: Yes (Other)
  Sender: FDA-Public Use
  Company Number: US-ROCHE-756319

PATIENT

DRUGS (4)
  1. CAPECITABINE [Suspect]
     Route: 065
  2. OXALIPLATIN [Suspect]
     Route: 065
  3. CETUXIMAB [Suspect]
     Route: 065
  4. GEMCITABINE [Suspect]
     Route: 065

REACTIONS (5)
  - HAEMATOTOXICITY [None]
  - DERMATITIS ACNEIFORM [None]
  - GASTROINTESTINAL TOXICITY [None]
  - FATIGUE [None]
  - PARAESTHESIA [None]
